FAERS Safety Report 12901854 (Version 1)
Quarter: 2016Q4

REPORT INFORMATION
  Report Type: Report from Study
  Country: DE (occurrence: DE)
  Receive Date: 20161102
  Receipt Date: 20161102
  Transmission Date: 20170207
  Serious: Yes (Hospitalization)
  Sender: FDA-Public Use
  Company Number: DE-ROCHE-1847134

PATIENT
  Age: 65 Year
  Sex: Female
  Weight: 65 kg

DRUGS (6)
  1. TRASTUZUMAB [Suspect]
     Active Substance: TRASTUZUMAB
     Indication: BREAST CANCER
     Dosage: LOADING DOSE
     Route: 042
     Dates: start: 20150730
  2. PERTUZUMAB [Suspect]
     Active Substance: PERTUZUMAB
     Dosage: MAINTAINANCE DOSE.?LAST DOSE PRIOR TO SAE ON 12/NOV/2015.
     Route: 042
  3. PACLITAXEL. [Suspect]
     Active Substance: PACLITAXEL
     Indication: BREAST CANCER
     Dosage: LAST DOSE PRIOR TO SAE ON 26/NOV/2015
     Route: 042
     Dates: start: 20150730
  4. PERTUZUMAB [Suspect]
     Active Substance: PERTUZUMAB
     Indication: BREAST CANCER
     Dosage: LOADING DOSE
     Route: 042
     Dates: start: 20150730
  5. TRASTUZUMAB [Suspect]
     Active Substance: TRASTUZUMAB
     Dosage: MAINTAINANCE DOSE.?LAST DOSE PRIOR TO SAE ON 12/NOV/2015.
     Route: 042
  6. DOXORUBICIN HYDROCHLORIDE. [Suspect]
     Active Substance: DOXORUBICIN HYDROCHLORIDE
     Indication: BREAST CANCER
     Dosage: LAST DOSE PRIOR TO SAE ON 26/NOV/2015
     Route: 042
     Dates: start: 20150730

REACTIONS (1)
  - Herpes ophthalmic [Recovered/Resolved with Sequelae]

NARRATIVE: CASE EVENT DATE: 20151130
